FAERS Safety Report 5252258-7 (Version None)
Quarter: 2007Q1

REPORT INFORMATION
  Report Type: 
  Country: None (occurrence: None)
  Receive Date: 20070301
  Receipt Date: 20070219
  Transmission Date: 20070707
  Serious: Yes (Hospitalization)
  Sender: FDA-Public Use
  Company Number: HQWYE174120FEB07

PATIENT
  Age: 79 Year
  Sex: Female

DRUGS (10)
  1. CORDARONE [Suspect]
     Route: 048
  2. PREVISCAN [Suspect]
     Route: 048
  3. TENORMIN [Suspect]
     Route: 048
  4. CORVASAL [Concomitant]
     Dosage: NOT PROVIDED
     Route: 065
  5. RENAGEL [Suspect]
     Route: 048
  6. VASTEN [Concomitant]
     Dosage: NOT PROVIDED
     Route: 048
  7. TEMESTA [Concomitant]
     Dosage: NOT PROVIDED
     Route: 048
  8. ZANTAC [Concomitant]
     Dosage: NOT PROVIDED
     Route: 065
  9. KAYEXALATE [Suspect]
     Route: 048
  10. KENZEN [Suspect]
     Route: 048

REACTIONS (4)
  - ABDOMINAL PAIN [None]
  - CHEST PAIN [None]
  - CYTOLYTIC HEPATITIS [None]
  - HAEMOLYSIS [None]
